FAERS Safety Report 23520405 (Version 4)
Quarter: 2024Q3

REPORT INFORMATION
  Report Type: Spontaneous
  Country: US (occurrence: US)
  Receive Date: 20240214
  Receipt Date: 20240902
  Transmission Date: 20241017
  Serious: No
  Sender: BRISTOL MYERS SQUIBB
  Company Number: US-BRISTOL-MYERS SQUIBB COMPANY-2024-020413

PATIENT
  Age: 74 Year
  Sex: Male

DRUGS (5)
  1. LENALIDOMIDE [Suspect]
     Active Substance: LENALIDOMIDE
     Indication: Plasma cell myeloma
     Dosage: TAKE 1 CAPSULE BY MOUTH DAILY FOR 21 CONSECUTIVE DAYS, THEN STOP FOR 7 CONSECUTIVE DAYS, SWALLOW WHO
     Route: 048
     Dates: start: 20240201
  2. LENALIDOMIDE [Suspect]
     Active Substance: LENALIDOMIDE
     Route: 048
  3. DEXAMETHASONE [Suspect]
     Active Substance: DEXAMETHASONE
     Indication: Product used for unknown indication
  4. DARZALEX [Concomitant]
     Active Substance: DARATUMUMAB
     Indication: Product used for unknown indication
  5. VELCADE [Concomitant]
     Active Substance: BORTEZOMIB
     Indication: Product used for unknown indication

REACTIONS (13)
  - Tremor [Unknown]
  - Constipation [Recovering/Resolving]
  - Fatigue [Unknown]
  - Lethargy [Not Recovered/Not Resolved]
  - Anaemia [Unknown]
  - Flatulence [Unknown]
  - Secretion discharge [Unknown]
  - Insomnia [Unknown]
  - Seasonal allergy [Unknown]
  - Hypophagia [Unknown]
  - Weight decreased [Unknown]
  - Asthenia [Unknown]
  - Bowel movement irregularity [Unknown]
